FAERS Safety Report 16431660 (Version 2)
Quarter: 2019Q2

REPORT INFORMATION
  Report Type: Spontaneous
  Country: US (occurrence: US)
  Receive Date: 20190614
  Receipt Date: 20190626
  Transmission Date: 20190711
  Serious: No
  Sender: FDA-Public Use
  Company Number: US-KRAMERLABS-2019-US-003483

PATIENT
  Age: 93 Year
  Sex: Female
  Weight: 51.71 kg

DRUGS (10)
  1. NIZORAL A-D [Suspect]
     Active Substance: KETOCONAZOLE
     Indication: PSORIASIS
     Dosage: 2 %, 2 IN 1 WEEK ONCE DAILY OR TWICE A WEEK
     Route: 061
     Dates: start: 2016
  2. SEROQUEL [Concomitant]
     Active Substance: QUETIAPINE FUMARATE
     Route: 065
  3. MELATONIN [Concomitant]
     Active Substance: MELATONIN
     Dosage: 5 MG
     Route: 065
  4. TRAMADOL. [Concomitant]
     Active Substance: TRAMADOL
     Dosage: 25 MG / 50 MG
     Route: 065
  5. PARACETAMOL [Concomitant]
     Active Substance: ACETAMINOPHEN
     Route: 065
  6. SYNTHROID [Concomitant]
     Active Substance: LEVOTHYROXINE SODIUM
     Dosage: 25 UG
     Route: 065
  7. VITAMIN D3 [Concomitant]
     Active Substance: CHOLECALCIFEROL
     Dosage: 50,000 WEEKLY
     Route: 065
  8. L-LYSIN [Concomitant]
     Dosage: 500 MG
     Route: 065
  9. COLACE [Concomitant]
     Active Substance: DOCUSATE SODIUM
     Route: 065
  10. SERTRALINE [Concomitant]
     Active Substance: SERTRALINE HYDROCHLORIDE
     Dosage: 75 MG
     Route: 065

REACTIONS (3)
  - Hair colour changes [Not Recovered/Not Resolved]
  - Product use in unapproved indication [Unknown]
  - Off label use [Unknown]

NARRATIVE: CASE EVENT DATE: 20190124
